FAERS Safety Report 4717838-3 (Version None)
Quarter: 2005Q3

REPORT INFORMATION
  Report Type: 
  Country: None (occurrence: None)
  Receive Date: 20050718
  Receipt Date: 20050107
  Transmission Date: 20060218
  Serious: No
  Sender: FDA-Public Use
  Company Number: 2005000055

PATIENT
  Age: 81 Year
  Sex: Female

DRUGS (9)
  1. TARCEVA [Suspect]
     Indication: NON-SMALL CELL LUNG CANCER
     Dosage: 150MG (QD), ORAL
     Route: 048
     Dates: start: 20041221
  2. ZETIA [Concomitant]
  3. COLESEVELAM HYDROCHLORIDE [Concomitant]
  4. DILTIAZEM HYDROCHLORIDE [Concomitant]
  5. MAGNESIUM OXIDE [Concomitant]
  6. ALENDRONATE SODIUM [Concomitant]
  7. LEXAPRO [Concomitant]
  8. LATANOPROST [Concomitant]
  9. TIMOLOL MALEATE [Concomitant]

REACTIONS (2)
  - HAEMOGLOBIN DECREASED [None]
  - RASH [None]
